FAERS Safety Report 25709518 (Version 2)
Quarter: 2025Q3

REPORT INFORMATION
  Report Type: Spontaneous
  Country: JP (occurrence: JP)
  Receive Date: 20250821
  Receipt Date: 20250926
  Transmission Date: 20251021
  Serious: Yes (Other)
  Sender: VERICEL
  Company Number: JP-VERICEL-JP-VCEL-25-000249

PATIENT
  Age: 77 Year
  Sex: Male
  Weight: 88 kg

DRUGS (10)
  1. BROMELAINS [Suspect]
     Active Substance: BROMELAINS
     Indication: Burns second degree
     Route: 061
     Dates: start: 20250303, end: 20250303
  2. BROMELAINS [Suspect]
     Active Substance: BROMELAINS
     Indication: Burns third degree
  3. FIBLAST [TRAFERMIN] [Concomitant]
     Indication: Thermal burn
     Route: 061
  4. REMIFENTANIL [Concomitant]
     Active Substance: REMIFENTANIL
     Indication: Pain management
     Route: 042
  5. DOBUTAMINE [Concomitant]
     Active Substance: DOBUTAMINE HYDROCHLORIDE
     Indication: Cardiovascular evaluation
     Route: 042
  6. NOREPINEPHRINE BITARTRATE [Concomitant]
     Active Substance: NOREPINEPHRINE BITARTRATE
     Indication: Cardiovascular evaluation
     Route: 042
  7. PIPERACILLIN SODIUM [Concomitant]
     Active Substance: PIPERACILLIN SODIUM
     Indication: Infection prophylaxis
     Route: 042
  8. OMEPRAZOLE [Concomitant]
     Active Substance: OMEPRAZOLE
     Indication: Prophylaxis
     Route: 042
  9. OMEPRAZOLE [Concomitant]
     Active Substance: OMEPRAZOLE
     Indication: Stress ulcer
  10. KETALAR [Concomitant]
     Active Substance: KETAMINE HYDROCHLORIDE
     Indication: Pain management
     Route: 042

REACTIONS (1)
  - Renal impairment [Recovered/Resolved]

NARRATIVE: CASE EVENT DATE: 20250321
